FAERS Safety Report 14752087 (Version 3)
Quarter: 2018Q2

REPORT INFORMATION
  Report Type: Spontaneous
  Country: US (occurrence: US)
  Receive Date: 20180412
  Receipt Date: 20180419
  Transmission Date: 20180711
  Serious: Yes (Hospitalization)
  Sender: FDA-Public Use
  Company Number: US-PFIZER INC-2018146459

PATIENT
  Age: 10 Year
  Sex: Female

DRUGS (1)
  1. BESPONSA [Suspect]
     Active Substance: INOTUZUMAB OZOGAMICIN
     Indication: ACUTE LYMPHOCYTIC LEUKAEMIA
     Dosage: UNK UNK, WEEKLY (DAY 1, DAY 8, AND DAY 15)

REACTIONS (3)
  - Pyrexia [Unknown]
  - Malaise [Unknown]
  - Viral infection [Unknown]
